FAERS Safety Report 9757990 (Version 1)
Quarter: 2013Q4

REPORT INFORMATION
  Report Type: Spontaneous
  Country: US (occurrence: US)
  Receive Date: 20131216
  Receipt Date: 20131216
  Transmission Date: 20140711
  Serious: No
  Sender: FDA-Public Use
  Company Number: US-TEVA-410904USA

PATIENT
  Age: 31 Year
  Sex: Female
  Weight: 79.45 kg

DRUGS (3)
  1. PARAGARD 380A [Suspect]
     Indication: CONTRACEPTION
     Route: 015
     Dates: start: 20120523, end: 20130513
  2. LEXAPRO [Concomitant]
     Indication: DEPRESSION
  3. MOTRIN [Concomitant]
     Indication: PAIN

REACTIONS (3)
  - Device expulsion [Recovered/Resolved]
  - Muscle spasms [Unknown]
  - Device difficult to use [Recovered/Resolved]
